FAERS Safety Report 11785471 (Version 1)
Quarter: 2015Q4

REPORT INFORMATION
  Report Type: Spontaneous
  Country: US (occurrence: None)
  Receive Date: 20151125
  Receipt Date: 20151125
  Transmission Date: 20160305
  Serious: Yes (Hospitalization)
  Sender: FDA-Public Use
  Company Number: None

PATIENT
  Age: 83 Year
  Sex: Female
  Weight: 55.8 kg

DRUGS (2)
  1. BENDAMUSTINE HYDROCHLORIDE [Suspect]
     Active Substance: BENDAMUSTINE HYDROCHLORIDE
     Dates: end: 20140630
  2. RITUXIMAB [Suspect]
     Active Substance: RITUXIMAB
     Dates: end: 20140630

REACTIONS (6)
  - Cancer pain [None]
  - Metastatic renal cell carcinoma [None]
  - Breast swelling [None]
  - Malignant pleural effusion [None]
  - Pneumothorax [None]
  - Back pain [None]

NARRATIVE: CASE EVENT DATE: 20151122
